FAERS Safety Report 7247792-4 (Version None)
Quarter: 2011Q1

REPORT INFORMATION
  Report Type: 
  Country: None (occurrence: None)
  Receive Date: 20110127
  Receipt Date: 20110114
  Transmission Date: 20110831
  Serious: No
  Sender: FDA-Public Use
  Company Number: US-ELI_LILLY_AND_COMPANY-US201011003223

PATIENT
  Age: 45 Year
  Sex: Male
  Weight: 104.31 kg

DRUGS (5)
  1. CYMBALTA [Suspect]
     Dosage: 30 MG, UNK
     Dates: end: 20101108
  2. CYMBALTA [Suspect]
     Dosage: 60 MG, UNKNOWN
     Dates: start: 20080526
  3. CYMBALTA [Suspect]
     Dosage: 90 MG, UNK
  4. CYMBALTA [Suspect]
     Indication: DEPRESSION
     Dosage: 30 MG, UNKNOWN
     Dates: start: 20080519, end: 20080525
  5. CYMBALTA [Suspect]
     Dosage: 60 MG, UNK

REACTIONS (3)
  - ABDOMINAL PAIN [None]
  - WITHDRAWAL SYNDROME [None]
  - HEPATIC ENZYME INCREASED [None]
